FAERS Safety Report 7940560-7 (Version None)
Quarter: 2011Q4

REPORT INFORMATION
  Report Type: 
  Country: None (occurrence: None)
  Receive Date: 20111114
  Receipt Date: 20110421
  Transmission Date: 20120403
  Serious: Yes (Other)
  Sender: FDA-Public Use
  Company Number: 2011S1000292

PATIENT
  Sex: Female
  Weight: 136 kg

DRUGS (2)
  1. CUBICIN [Suspect]
     Indication: OSTEOMYELITIS
     Dosage: 5.88 MG/KG; Q24H; IV
     Route: 042
     Dates: start: 20110406
  2. CUBICIN [Suspect]
     Indication: POSTOPERATIVE WOUND INFECTION
     Dosage: 5.88 MG/KG; Q24H; IV
     Route: 042
     Dates: start: 20110406

REACTIONS (1)
  - MYOPATHY [None]
